FAERS Safety Report 18709883 (Version 1)
Quarter: 2021Q1

REPORT INFORMATION
  Report Type: Spontaneous
  Country: US (occurrence: US)
  Receive Date: 20210107
  Receipt Date: 20210107
  Transmission Date: 20210419
  Serious: No
  Sender: FDA-Public Use
  Company Number: US-CIPLA LTD.-2020US07071

PATIENT

DRUGS (6)
  1. AMLODIPINE [Suspect]
     Active Substance: AMLODIPINE BESYLATE
     Dosage: 10 MILLIGRAM, ONE HALF OF A TABLET BY DAY AND ANOTHER HALF BY NIGHT
     Route: 048
     Dates: start: 2020
  2. AMLODIPINE [Suspect]
     Active Substance: AMLODIPINE BESYLATE
     Dosage: 10 MILLIGRAM
     Route: 048
     Dates: start: 20200227
  3. AMLODIPINE [Suspect]
     Active Substance: AMLODIPINE BESYLATE
     Dosage: 10 MILLIGRAM
     Route: 048
     Dates: start: 20200423
  4. AMLODIPINE [Suspect]
     Active Substance: AMLODIPINE BESYLATE
     Dosage: 10 MILLIGRAM
     Route: 048
     Dates: start: 20200724
  5. LEVOXYL [Concomitant]
     Active Substance: LEVOTHYROXINE SODIUM
     Indication: HYPOTHYROIDISM
     Dosage: 75 MICROGRAM, ONE EVERY MORNING
     Route: 065
     Dates: start: 2008
  6. AMLODIPINE [Suspect]
     Active Substance: AMLODIPINE BESYLATE
     Indication: HYPERTENSION
     Dosage: 10 MILLIGRAM, ONE FOURTH OF A TABLET IN THE DAY AND ONE HALF IN THE NIGHT
     Route: 048
     Dates: start: 2011

REACTIONS (7)
  - Drug ineffective [Unknown]
  - Weight fluctuation [Not Recovered/Not Resolved]
  - Incorrect dose administered [Unknown]
  - Blood pressure fluctuation [Not Recovered/Not Resolved]
  - Body height decreased [Unknown]
  - Heart rate irregular [Not Recovered/Not Resolved]
  - Wrong technique in product usage process [Unknown]

NARRATIVE: CASE EVENT DATE: 2011
